FAERS Safety Report 8590999-4 (Version None)
Quarter: 2012Q3

REPORT INFORMATION
  Report Type: 
  Country: None (occurrence: None)
  Receive Date: 20120813
  Receipt Date: 20120731
  Transmission Date: 20120928
  Serious: Yes (Other)
  Sender: FDA-Public Use
  Company Number: US-JNJFOC-20120703169

PATIENT
  Age: 22 Year
  Sex: Male
  Weight: 70 kg

DRUGS (6)
  1. REMICADE [Suspect]
     Indication: CROHN'S DISEASE
     Dosage: APPROXIMATELY 11 INFUSIONS
     Route: 042
     Dates: start: 20100101, end: 20120101
  2. METHOTREXATE [Concomitant]
     Route: 048
     Dates: start: 20101201, end: 20120401
  3. FLAGYL [Concomitant]
     Indication: GASTROINTESTINAL DISORDER
  4. VITAMIN [Concomitant]
  5. PREDNISONE TAB [Concomitant]
  6. CIPROFLOXACIN HCL [Concomitant]
     Indication: GASTROINTESTINAL DISORDER

REACTIONS (1)
  - HODGKIN'S DISEASE [None]
